FAERS Safety Report 19217270 (Version 3)
Quarter: 2021Q4

REPORT INFORMATION
  Report Type: Spontaneous
  Country: NL (occurrence: NL)
  Receive Date: 20210505
  Receipt Date: 20211008
  Transmission Date: 20220303
  Serious: Yes (Hospitalization)
  Sender: FDA-Public Use
  Company Number: NL-ROCHE-2821901

PATIENT
  Age: 32 Year
  Sex: Female

DRUGS (5)
  1. OCRELIZUMAB [Suspect]
     Active Substance: OCRELIZUMAB
     Indication: Relapsing-remitting multiple sclerosis
     Dosage: THEN 600 MG EVERY SIX MONTHS?ON 12/JUL/2020, SHE RECEIVED LAST DOSE OF OCRELIZUMAB PRIOR TO ONSET OF
     Route: 042
     Dates: start: 20181224
  2. COPAXONE [Concomitant]
     Active Substance: GLATIRAMER ACETATE
  3. CEFUROXIME [Concomitant]
     Active Substance: CEFUROXIME
     Indication: Borrelia infection
  4. CEFTRIAXONE [Concomitant]
     Active Substance: CEFTRIAXONE
  5. ACYCLOVIR [Concomitant]
     Active Substance: ACYCLOVIR

REACTIONS (1)
  - Herpes simplex encephalitis [Unknown]
